FAERS Safety Report 6986199-1 (Version None)
Quarter: 2010Q3

REPORT INFORMATION
  Report Type: 
  Country: None (occurrence: None)
  Receive Date: 20100915
  Receipt Date: 20090603
  Transmission Date: 20110219
  Serious: No
  Sender: FDA-Public Use
  Company Number: US-WYE-H09585609

PATIENT
  Sex: Female

DRUGS (3)
  1. PRISTIQ [Suspect]
     Indication: DEPRESSION
     Dosage: 50 MG (FREQUENCY UNSPECIFIED)
     Route: 048
  2. PRISTIQ [Suspect]
     Dosage: 100 MG (FREQUENCY UNSPECIFIED)
     Route: 048
  3. PRISTIQ [Suspect]
     Dosage: 50 MG (FREQUENCY UNSPECIFIED)
     Route: 048

REACTIONS (1)
  - MICTURITION URGENCY [None]
